FAERS Safety Report 7730399-X (Version None)
Quarter: 2011Q3

REPORT INFORMATION
  Report Type: 
  Country: None (occurrence: None)
  Receive Date: 20110822
  Receipt Date: 20110817
  Transmission Date: 20111222
  Serious: Yes (Other)
  Sender: FDA-Public Use
  Company Number: 2010024852

PATIENT
  Age: 38 Year
  Sex: Female
  Weight: 109.3 kg

DRUGS (51)
  1. CHOLESTYRAMINE (COLESTYRAMINE) [Concomitant]
  2. NORCO [Concomitant]
  3. LUVOX [Concomitant]
  4. HIZENTRA [Suspect]
  5. HIZENTRA [Suspect]
  6. ALLEGRA [Concomitant]
  7. PULMICORT [Concomitant]
  8. RISPERDAL [Concomitant]
  9. LUVOX [Concomitant]
  10. TOBI [Concomitant]
  11. CIPRO [Concomitant]
  12. HIZENTRA [Suspect]
  13. HIZENTRA [Suspect]
  14. HIZENTRA [Suspect]
  15. HIZENTRA [Suspect]
  16. HIZENTRA [Suspect]
  17. SEROQUEL [Concomitant]
  18. ERYTHROMYCIN [Concomitant]
  19. VITAMIN B12 [Concomitant]
  20. HIZENTRA [Suspect]
  21. LASIX [Concomitant]
  22. ACCOLATE [Concomitant]
  23. CARDIZEM [Concomitant]
  24. METFORMIN HCL [Concomitant]
  25. PHENERGAN [Concomitant]
  26. PERCOCET [Concomitant]
  27. HIZENTRA [Suspect]
  28. HIZENTRA [Suspect]
  29. TOPAMAX [Concomitant]
  30. HIZENTRA [Suspect]
  31. HIZENTRA [Suspect]
  32. EFFEXOR XR [Concomitant]
  33. GLYBURIDE [Concomitant]
  34. ASPIRIN [Concomitant]
  35. HIZENTRA [Suspect]
     Indication: IMMUNODEFICIENCY COMMON VARIABLE
     Dosage: SEE IMAGE
     Route: 058
     Dates: start: 20110425
  36. HIZENTRA [Suspect]
     Indication: IMMUNODEFICIENCY COMMON VARIABLE
     Dosage: SEE IMAGE
     Route: 058
     Dates: start: 20110815
  37. HIZENTRA [Suspect]
     Indication: IMMUNODEFICIENCY COMMON VARIABLE
     Dosage: SEE IMAGE
     Route: 058
     Dates: start: 20110425
  38. HIZENTRA [Suspect]
     Indication: IMMUNODEFICIENCY COMMON VARIABLE
     Dosage: SEE IMAGE
     Route: 058
     Dates: start: 20110603
  39. HIZENTRA [Suspect]
     Indication: IMMUNODEFICIENCY COMMON VARIABLE
     Dosage: SEE IMAGE
     Route: 058
     Dates: start: 20110724, end: 20110724
  40. HIZENTRA [Suspect]
     Indication: IMMUNODEFICIENCY COMMON VARIABLE
     Dosage: SEE IMAGE
     Route: 058
     Dates: start: 20110724, end: 20110724
  41. HIZENTRA [Suspect]
     Indication: IMMUNODEFICIENCY COMMON VARIABLE
     Dosage: SEE IMAGE
     Route: 058
     Dates: start: 20100526
  42. HIZENTRA [Suspect]
     Indication: IMMUNODEFICIENCY COMMON VARIABLE
     Dosage: SEE IMAGE
     Route: 058
     Dates: start: 20110724, end: 20110724
  43. HIZENTRA [Suspect]
     Indication: IMMUNODEFICIENCY COMMON VARIABLE
     Dosage: SEE IMAGE
     Route: 058
     Dates: start: 20110425
  44. HIZENTRA [Suspect]
     Indication: IMMUNODEFICIENCY COMMON VARIABLE
     Dosage: SEE IMAGE
     Route: 058
     Dates: start: 20110603
  45. HIZENTRA [Suspect]
     Indication: IMMUNODEFICIENCY COMMON VARIABLE
     Dosage: SEE IMAGE
     Route: 058
     Dates: start: 20110815
  46. HIZENTRA [Suspect]
  47. OXYCODONE-APAP (OXYCODONE/APAP) [Concomitant]
  48. DUONEB [Concomitant]
  49. PREVACID [Concomitant]
  50. ATIVAN [Concomitant]
  51. METHOCARBAMOL [Concomitant]

REACTIONS (16)
  - FATIGUE [None]
  - ORAL HERPES [None]
  - INFUSION SITE WARMTH [None]
  - INFUSION SITE PAIN [None]
  - PSEUDOMONAS INFECTION [None]
  - MIGRAINE [None]
  - INAPPROPRIATE SCHEDULE OF DRUG ADMINISTRATION [None]
  - CONDITION AGGRAVATED [None]
  - PHARYNGITIS [None]
  - VOMITING [None]
  - LUNG INFECTION [None]
  - UPPER RESPIRATORY TRACT INFECTION [None]
  - ARTHRALGIA [None]
  - INFUSION SITE ERYTHEMA [None]
  - PROTEUS INFECTION [None]
  - MENINGITIS ASEPTIC [None]
